FAERS Safety Report 7266275-9 (Version None)
Quarter: 2011Q1

REPORT INFORMATION
  Report Type: 
  Country: None (occurrence: None)
  Receive Date: 20110131
  Receipt Date: 20110124
  Transmission Date: 20110831
  Serious: Yes (Death, Hospitalization)
  Sender: FDA-Public Use
  Company Number: PT-BAXTER-2011BH002075

PATIENT
  Age: 49 Year
  Sex: Female

DRUGS (3)
  1. PHYSIOSOL IN PLASTIC CONTAINER [Suspect]
     Indication: PERITONEAL DIALYSIS
     Route: 033
     Dates: start: 20071001, end: 20110102
  2. EXTRANEAL [Suspect]
     Indication: PERITONEAL DIALYSIS
     Route: 033
     Dates: start: 20071001, end: 20110102
  3. MORPHINE [Concomitant]
     Indication: PAIN
     Route: 065

REACTIONS (3)
  - MULTIPLE MYELOMA [None]
  - CACHEXIA [None]
  - BONE PAIN [None]
